FAERS Safety Report 12941182 (Version 3)
Quarter: 2016Q4

REPORT INFORMATION
  Report Type: Spontaneous
  Country: CA (occurrence: CA)
  Receive Date: 20161115
  Receipt Date: 20161116
  Transmission Date: 20170207
  Serious: Yes (Hospitalization, Other)
  Sender: FDA-Public Use
  Company Number: CA-ASTRAZENECA-2016SF18629

PATIENT
  Age: 22317 Day
  Sex: Female

DRUGS (5)
  1. XIGDUO XR [Suspect]
     Active Substance: DAPAGLIFLOZIN PROPANEDIOL\METFORMIN HYDROCHLORIDE
     Indication: HYPERGLYCAEMIA
     Route: 048
     Dates: start: 20161004, end: 20161031
  2. DETROL LA [Concomitant]
     Active Substance: TOLTERODINE TARTRATE
  3. IRBESARTAN. [Concomitant]
     Active Substance: IRBESARTAN
  4. JANUVIA [Concomitant]
     Active Substance: SITAGLIPTIN PHOSPHATE
  5. SYNTHROID [Concomitant]
     Active Substance: LEVOTHYROXINE SODIUM

REACTIONS (8)
  - Diabetic ketoacidosis [Recovered/Resolved]
  - Metabolic acidosis [Unknown]
  - Nausea [Unknown]
  - Pneumonia [Recovering/Resolving]
  - Vomiting [Unknown]
  - Hydronephrosis [Unknown]
  - Hypophagia [Unknown]
  - Epigastric discomfort [Unknown]

NARRATIVE: CASE EVENT DATE: 20161031
